FAERS Safety Report 23284215 (Version 1)
Quarter: 2023Q4

REPORT INFORMATION
  Report Type: Spontaneous
  Country: DE (occurrence: DE)
  Receive Date: 20231211
  Receipt Date: 20231211
  Transmission Date: 20240109
  Serious: Yes (Hospitalization)
  Sender: FDA-Public Use
  Company Number: DE-TEVA-VS-3134959

PATIENT
  Age: 76 Year

DRUGS (1)
  1. METHOTREXATE [Suspect]
     Active Substance: METHOTREXATE
     Indication: Granulomatosis with polyangiitis
     Route: 065

REACTIONS (3)
  - Atypical mycobacterial infection [Recovering/Resolving]
  - Skin infection [Recovering/Resolving]
  - Mycobacterium haemophilum infection [Recovering/Resolving]
